FAERS Safety Report 11207527 (Version 1)
Quarter: 2015Q2

REPORT INFORMATION
  Report Type: Report from Study
  Country: US (occurrence: US)
  Receive Date: 20150622
  Receipt Date: 20150622
  Transmission Date: 20150821
  Serious: No
  Sender: FDA-Public Use
  Company Number: US-ABBVIE-15P-163-1382314-00

PATIENT
  Sex: Female

DRUGS (1)
  1. VIEKIRA PAK [Suspect]
     Active Substance: DASABUVIR\OMBITASVIR\PARITAPREVIR\RITONAVIR
     Indication: HEPATITIS C
     Dosage: 2 PINK TABLETS WITH ONE BEIGE TABLET EVERY MONRING, ONE BEIGE TABLET EVERY NIGHT
     Route: 065
     Dates: start: 20150303

REACTIONS (5)
  - Influenza like illness [Unknown]
  - Confusional state [Unknown]
  - Fatigue [Unknown]
  - Weight increased [Unknown]
  - Amnesia [Unknown]
